FAERS Safety Report 6644560-9 (Version None)
Quarter: 2010Q1

REPORT INFORMATION
  Report Type: 
  Country: None (occurrence: None)
  Receive Date: 20100317
  Receipt Date: 20100304
  Transmission Date: 20100710
  Serious: Yes (Other)
  Sender: FDA-Public Use
  Company Number: 2010AP000254

PATIENT
  Age: 30 Year
  Sex: Female

DRUGS (1)
  1. TOPIRAMATE [Suspect]
     Indication: INTRACRANIAL PRESSURE INCREASED
     Dosage: 25 MG; BID; 100 MG;BID
     Dates: start: 20091003

REACTIONS (5)
  - ABORTION SPONTANEOUS [None]
  - AMENORRHOEA [None]
  - DRUG EXPOSURE DURING PREGNANCY [None]
  - DRUG INTERACTION [None]
  - PREGNANCY WITH IMPLANT CONTRACEPTIVE [None]
